FAERS Safety Report 20732187 (Version 1)
Quarter: 2022Q2

REPORT INFORMATION
  Report Type: Spontaneous
  Country: ZA (occurrence: ZA)
  Receive Date: 20220420
  Receipt Date: 20220420
  Transmission Date: 20220721
  Serious: Yes (Hospitalization, Other)
  Sender: FDA-Public Use
  Company Number: ZA-ViiV Healthcare Limited-ZA2022GSK065960

PATIENT
  Age: 32 Year
  Sex: Male

DRUGS (4)
  1. DOLUTEGRAVIR [Suspect]
     Active Substance: DOLUTEGRAVIR
     Indication: HIV infection
     Dosage: UNK
  2. EFAVIRENZ [Concomitant]
     Active Substance: EFAVIRENZ
     Indication: HIV infection
     Dosage: UNK
  3. LAMIVUDINE [Concomitant]
     Active Substance: LAMIVUDINE
     Indication: HIV infection
     Dosage: UNK
  4. TENOFOVIR [Concomitant]
     Active Substance: TENOFOVIR
     Indication: HIV infection
     Dosage: UNK

REACTIONS (15)
  - Neuropsychiatric symptoms [Recovered/Resolved]
  - Fall [Unknown]
  - Haemothorax [Unknown]
  - Pericardial effusion [Unknown]
  - Rib fracture [Unknown]
  - Humerus fracture [Unknown]
  - Sleep disorder [Recovered/Resolved]
  - Dizziness [Recovered/Resolved]
  - Restlessness [Recovered/Resolved]
  - Condition aggravated [Recovered/Resolved]
  - Confusional state [Recovered/Resolved]
  - Insomnia [Recovered/Resolved]
  - Soliloquy [Recovered/Resolved]
  - Aggression [Recovered/Resolved]
  - Thinking abnormal [Recovered/Resolved]
